FAERS Safety Report 8856426 (Version 1)
Quarter: 2012Q4

REPORT INFORMATION
  Report Type: Spontaneous
  Country: BR (occurrence: None)
  Receive Date: 20121018
  Receipt Date: 20121018
  Transmission Date: 20130627
  Serious: Yes (Other)
  Sender: FDA-Public Use
  Company Number: DSJ-2012-18769

PATIENT
  Sex: Male
  Weight: 64 kg

DRUGS (8)
  1. BENICAR [Suspect]
     Indication: HYPERTENSION
     Dosage: 40 mg  (40 mg, 1 in 1 D), Per oral
     Route: 048
     Dates: start: 20101029, end: 201208
  2. BENICAR [Suspect]
     Indication: HYPERTENSION
     Route: 048
     Dates: start: 201208
  3. AMLODIPINE (AMLODIPINE) [Suspect]
     Indication: HYPERTENSION
     Dosage: 2.5 mg, Per oral
     Route: 048
     Dates: start: 20101029
  4. ALISKIREN (ALISKIREN) (ALISKIREN) [Concomitant]
  5. ACETYLSALICYLIC ACID (ACETYLSALICYLIC ACID)(ACETYLSALICYLIC ACID) [Concomitant]
  6. ATORVASTATIN (ATORVASTATIN) (ATORVASTATIN) [Concomitant]
  7. ALLOPURINOL (ALLOPURINOL) (ALLOPURINOL) [Concomitant]
  8. INSULIN (INSULIN) (INSULIN) [Concomitant]

REACTIONS (5)
  - Haemodialysis [None]
  - Weight decreased [None]
  - Diarrhoea [None]
  - Hypotension [None]
  - Arrhythmia [None]
